FAERS Safety Report 17509640 (Version 1)
Quarter: 2020Q1

REPORT INFORMATION
  Report Type: Spontaneous
  Country: FR (occurrence: FR)
  Receive Date: 20200306
  Receipt Date: 20200306
  Transmission Date: 20200409
  Serious: Yes (Other)
  Sender: FDA-Public Use
  Company Number: FR-ASTRAZENECA-2020SE28619

PATIENT
  Age: 52 Year
  Sex: Female
  Weight: 65 kg

DRUGS (6)
  1. SERETIDE [Concomitant]
     Active Substance: FLUTICASONE PROPIONATE\SALMETEROL XINAFOATE
  2. SOLUPRED [Concomitant]
  3. INORIAL [Concomitant]
     Active Substance: BILASTINE
  4. MOPRAL [Concomitant]
     Active Substance: OMEPRAZOLE
  5. FASENRA [Suspect]
     Active Substance: BENRALIZUMAB
     Indication: ASTHMA
     Dosage: 30.0MG UNKNOWN
     Route: 058
     Dates: start: 20191217
  6. MONTELUKAST [Concomitant]
     Active Substance: MONTELUKAST SODIUM

REACTIONS (8)
  - Eczema [Unknown]
  - Conjunctival hyperaemia [Unknown]
  - Dermatitis [Unknown]
  - Swelling face [Unknown]
  - Erythema [Unknown]
  - Hypersensitivity [Unknown]
  - Eye swelling [Unknown]
  - Dermatosis [Unknown]

NARRATIVE: CASE EVENT DATE: 20200220
